FAERS Safety Report 9530806 (Version 1)
Quarter: 2013Q3

REPORT INFORMATION
  Report Type: Spontaneous
  Country: US (occurrence: None)
  Receive Date: 20130916
  Receipt Date: 20130916
  Transmission Date: 20140515
  Serious: Yes (Other)
  Sender: FDA-Public Use
  Company Number: None

PATIENT
  Age: 92 Year
  Sex: Male
  Weight: 95.7 kg

DRUGS (11)
  1. RIVAROXABAN [Suspect]
     Dates: start: 20130502
  2. BISACODYL [Concomitant]
  3. COREG [Concomitant]
  4. DEXTROSE\DOPAMINE [Concomitant]
  5. FAMOTIDINE [Concomitant]
  6. FINASTERIDE [Concomitant]
  7. GABAPENTIN [Concomitant]
  8. HYDROCORTISONE [Concomitant]
  9. LISINOPRIL [Concomitant]
  10. PIPERACILLIN AND TAZOBACTAM [Concomitant]
  11. PREDNISONE [Concomitant]

REACTIONS (6)
  - Urosepsis [None]
  - Blood pressure decreased [None]
  - Deep vein thrombosis [None]
  - Atrial fibrillation [None]
  - Haemoglobin decreased [None]
  - Haematocrit decreased [None]
